FAERS Safety Report 22030114 (Version 1)
Quarter: 2023Q1

REPORT INFORMATION
  Report Type: Spontaneous
  Country: US (occurrence: None)
  Receive Date: 20230221
  Receipt Date: 20230221
  Transmission Date: 20230418
  Serious: No
  Sender: FDA-Public Use
  Company Number: None

PATIENT
  Age: 82 Year
  Sex: Male

DRUGS (19)
  1. ERLEADA [Suspect]
     Active Substance: APALUTAMIDE
     Dosage: 120MG ONCE DAILY
     Route: 048
  2. ALLOPURINOL [Concomitant]
     Active Substance: ALLOPURINOL
  3. ASPIRIN [Concomitant]
     Active Substance: ASPIRIN
  4. BICALUTAMIDE [Concomitant]
     Active Substance: BICALUTAMIDE
  5. CLOBETASOL [Concomitant]
     Active Substance: CLOBETASOL
  6. EXFORGE HCT [Concomitant]
     Active Substance: AMLODIPINE BESYLATE\HYDROCHLOROTHIAZIDE\VALSARTAN
  7. FINASTERIDE [Concomitant]
     Active Substance: FINASTERIDE
  8. FUROSEMIDE [Concomitant]
     Active Substance: FUROSEMIDE
  9. GAVILAX [Concomitant]
     Active Substance: POLYETHYLENE GLYCOL 3350
  10. HYDROCORTISONE [Concomitant]
     Active Substance: HYDROCORTISONE
  11. MAGOX [Concomitant]
  12. METOPROLOL [Concomitant]
     Active Substance: METOPROLOL
  13. PROAIR HFA [Concomitant]
     Active Substance: ALBUTEROL SULFATE
  14. ROSUVASTATIN [Concomitant]
     Active Substance: ROSUVASTATIN
  15. TAMSULOSIN [Concomitant]
     Active Substance: TAMSULOSIN
  16. TRELEGY ELLIPTA [Concomitant]
     Active Substance: FLUTICASONE FUROATE\UMECLIDINIUM BROMIDE\VILANTEROL TRIFENATATE
  17. TRULANCE [Concomitant]
     Active Substance: PLECANATIDE
  18. VASCEPA [Concomitant]
     Active Substance: ICOSAPENT ETHYL
  19. VITAMIN D [Concomitant]
     Active Substance: VITAMIN D NOS

REACTIONS (2)
  - Nail disorder [None]
  - Diarrhoea [None]
